FAERS Safety Report 12186276 (Version 1)
Quarter: 2016Q1

REPORT INFORMATION
  Report Type: Spontaneous
  Country: US (occurrence: US)
  Receive Date: 20160317
  Receipt Date: 20160317
  Transmission Date: 20160526
  Serious: Yes (Hospitalization, Other)
  Sender: FDA-Public Use
  Company Number: US-ASTRAZENECA-2016SE27193

PATIENT
  Sex: Male
  Weight: 90.7 kg

DRUGS (4)
  1. CARBIDOPA-LEVODOPA [Concomitant]
     Active Substance: CARBIDOPA\LEVODOPA
     Indication: PARKINSON^S DISEASE
     Dosage: GENERIC SINEMET, DOSAGE OF 25/100MG, TAKEN EIGHT AND ONE HALF TIMES PER DAY
  2. FENOFIBRATE. [Concomitant]
     Active Substance: FENOFIBRATE
     Indication: BLOOD CHOLESTEROL ABNORMAL
  3. CRESTOR [Suspect]
     Active Substance: ROSUVASTATIN CALCIUM
     Indication: BLOOD CHOLESTEROL INCREASED
     Dosage: DAILY
     Route: 048
  4. LANTUS [Concomitant]
     Active Substance: INSULIN GLARGINE
     Indication: DIABETES MELLITUS
     Route: 058
     Dates: start: 201601

REACTIONS (6)
  - Parkinson^s disease [Unknown]
  - Diabetes mellitus [Unknown]
  - Pain in extremity [Unknown]
  - Gastrointestinal carcinoma [Unknown]
  - Asthenia [Unknown]
  - Gait disturbance [Unknown]
